FAERS Safety Report 10383514 (Version 2)
Quarter: 2014Q4

REPORT INFORMATION
  Report Type: Report from Study
  Country: US (occurrence: US)
  Receive Date: 20140814
  Receipt Date: 20141014
  Transmission Date: 20150528
  Serious: Yes (Hospitalization)
  Sender: FDA-Public Use
  Company Number: US-BIOGENIDEC-2014BI079918

PATIENT
  Age: 47 Year
  Sex: Female

DRUGS (2)
  1. AVONEX [Suspect]
     Active Substance: INTERFERON BETA-1A
     Indication: MULTIPLE SCLEROSIS
     Route: 030
     Dates: start: 201003, end: 201308
  2. AVONEX [Suspect]
     Active Substance: INTERFERON BETA-1A
     Indication: MULTIPLE SCLEROSIS
     Route: 030
     Dates: start: 201308

REACTIONS (6)
  - Feeling abnormal [Not Recovered/Not Resolved]
  - Asthenia [Not Recovered/Not Resolved]
  - Multiple sclerosis relapse [Not Recovered/Not Resolved]
  - Loss of control of legs [Recovered/Resolved]
  - Muscle tightness [Recovered/Resolved]
  - Tremor [Unknown]

NARRATIVE: CASE EVENT DATE: 201407
